FAERS Safety Report 4631236-2 (Version None)
Quarter: 2005Q2

REPORT INFORMATION
  Report Type: 
  Country: None (occurrence: None)
  Receive Date: 20050407
  Receipt Date: 20050407
  Transmission Date: 20051028
  Serious: Yes (Other)
  Sender: FDA-Public Use
  Company Number: None

PATIENT
  Sex: Male

DRUGS (1)
  1. HYDROCODONE / APAP 5 - 500MG WATSON + MALLINCKRODT [Suspect]
     Dosage: 2 TAB PO 2-3X/DPM
     Route: 048

REACTIONS (1)
  - DRUG INEFFECTIVE [None]
